FAERS Safety Report 8102420-0 (Version None)
Quarter: 2012Q1

REPORT INFORMATION
  Report Type: 
  Country: None (occurrence: None)
  Receive Date: 20120131
  Receipt Date: 20120131
  Transmission Date: 20120608
  Serious: Yes (Hospitalization)
  Sender: FDA-Public Use
  Company Number: None

PATIENT
  Age: 84 Year
  Sex: Male
  Weight: 92.6 kg

DRUGS (2)
  1. ALPRAZOLAM [Suspect]
     Dosage: 1 MG TID PO
     Route: 048
     Dates: start: 20100121, end: 20120118
  2. RISPERIDONE [Suspect]
     Dosage: 0.5 MG BID PO
     Route: 048
     Dates: start: 20090226, end: 20120118

REACTIONS (1)
  - MENTAL STATUS CHANGES [None]
